FAERS Safety Report 5223581-7 (Version None)
Quarter: 2007Q1

REPORT INFORMATION
  Report Type: 
  Country: None (occurrence: None)
  Receive Date: 20070125
  Receipt Date: 20070118
  Transmission Date: 20070707
  Serious: Yes (Other)
  Sender: FDA-Public Use
  Company Number: 2007-00217

PATIENT
  Age: 32 Year
  Sex: Male

DRUGS (1)
  1. BACLOFEN (WATSON LABORATORIES) (BACLOFEN) TABLET, 1OMG [Suspect]
     Indication: MUSCLE SPASMS
     Dosage: SEE IMAGE
     Route: 048

REACTIONS (1)
  - PSYCHOTIC DISORDER [None]
